FAERS Safety Report 22635584 (Version 1)
Quarter: 2023Q2

REPORT INFORMATION
  Report Type: Spontaneous
  Country: ES (occurrence: ES)
  Receive Date: 20230623
  Receipt Date: 20230623
  Transmission Date: 20230722
  Serious: Yes (Life-Threatening, Other)
  Sender: FDA-Public Use
  Company Number: None

PATIENT
  Age: 7 Year
  Sex: Male

DRUGS (3)
  1. CETIRIZINE [Suspect]
     Active Substance: CETIRIZINE HYDROCHLORIDE
     Indication: Pruritus
     Dosage: 5 MILLIGRAM, QD
     Route: 048
     Dates: start: 20230404, end: 20230410
  2. FUROSEMIDE [Suspect]
     Active Substance: FUROSEMIDE
     Indication: Papilloedema
     Dosage: 15 MILLIGRAM, Q8H
     Route: 048
     Dates: start: 20230329, end: 20230412
  3. METAMIZOL [Suspect]
     Active Substance: METAMIZOLE SODIUM
     Indication: Pain
     Dosage: 330 MILLIGRAM, PRN
     Route: 042
     Dates: start: 20230331, end: 20230419

REACTIONS (1)
  - Agranulocytosis [Recovered/Resolved]

NARRATIVE: CASE EVENT DATE: 20230413
